FAERS Safety Report 24625040 (Version 2)
Quarter: 2025Q3

REPORT INFORMATION
  Report Type: Spontaneous
  Country: US (occurrence: US)
  Receive Date: 20241115
  Receipt Date: 20250816
  Transmission Date: 20251021
  Serious: No
  Sender: ALEXION PHARMACEUTICALS
  Company Number: US-AstraZeneca-CH-00712129AP

PATIENT
  Sex: Male
  Weight: 85.261 kg

DRUGS (2)
  1. BREZTRI [Suspect]
     Active Substance: BUDESONIDE\FORMOTEROL\GLYCOPYRROLATE
     Dosage: 160 MICROGRAM, QD
  2. SYMBICORT [Suspect]
     Active Substance: BUDESONIDE\FORMOTEROL FUMARATE DIHYDRATE
     Dosage: UNKNOWN, EVERYDAY

REACTIONS (5)
  - Dry skin [Unknown]
  - Dyspnoea [Unknown]
  - Product use issue [Unknown]
  - Device malfunction [Unknown]
  - Wrong technique in device usage process [Unknown]
